FAERS Safety Report 6729914-4 (Version None)
Quarter: 2010Q2

REPORT INFORMATION
  Report Type: 
  Country: None (occurrence: None)
  Receive Date: 20100518
  Receipt Date: 20100506
  Transmission Date: 20101027
  Serious: Yes (Hospitalization, Other)
  Sender: FDA-Public Use
  Company Number: PHHY2009DE48765

PATIENT
  Sex: Male
  Weight: 77 kg

DRUGS (9)
  1. EXJADE [Suspect]
     Indication: MYELODYSPLASTIC SYNDROME
     Dosage: 500 MG, QD
     Route: 048
     Dates: start: 20091028, end: 20091105
  2. EXJADE [Suspect]
     Indication: HAEMOSIDEROSIS
  3. VOLTAREN [Suspect]
     Indication: GOUT
     Dosage: UNK
     Dates: start: 20091101
  4. FUROSEMIDE [Concomitant]
  5. RAMIPRIL [Concomitant]
  6. TRANSFUSIONS [Concomitant]
     Dosage: UNK
  7. ANALGESICS [Concomitant]
  8. DIURETICS [Concomitant]
  9. ACE INHIBITOR NOS [Concomitant]

REACTIONS (6)
  - BLOOD CREATININE INCREASED [None]
  - DEHYDRATION [None]
  - GOUT [None]
  - RENAL FAILURE ACUTE [None]
  - URINARY HESITATION [None]
  - URINE OUTPUT DECREASED [None]
